FAERS Safety Report 18033823 (Version 1)
Quarter: 2020Q3

REPORT INFORMATION
  Report Type: Spontaneous
  Country: FR (occurrence: FR)
  Receive Date: 20200717
  Receipt Date: 20200717
  Transmission Date: 20201103
  Serious: Yes (Hospitalization)
  Sender: FDA-Public Use
  Company Number: FR-ACCORD-189472

PATIENT
  Age: 86 Year
  Sex: Female

DRUGS (2)
  1. AMLODIPINE [Suspect]
     Active Substance: AMLODIPINE BESYLATE
     Indication: HYPERTENSION
     Route: 048
     Dates: start: 20200514, end: 20200609
  2. DIPIPERON [Suspect]
     Active Substance: PIPAMPERONE
     Indication: AGITATION
     Route: 048
     Dates: start: 20200609, end: 20200609

REACTIONS (2)
  - Hypotension [Recovered/Resolved]
  - Blood pressure fluctuation [Recovered/Resolved]

NARRATIVE: CASE EVENT DATE: 20200609
